FAERS Safety Report 6025428-8 (Version None)
Quarter: 2008Q4

REPORT INFORMATION
  Report Type: 
  Country: None (occurrence: None)
  Receive Date: 20081219
  Receipt Date: 20081212
  Transmission Date: 20090506
  Serious: Yes (Life-Threatening)
  Sender: FDA-Public Use
  Company Number: THYM-1000857

PATIENT
  Age: 49 Year
  Sex: Female
  Weight: 65 kg

DRUGS (7)
  1. THYMOGLOBULIN [Suspect]
     Indication: BONE MARROW TRANSPLANT
     Dosage: 2.5 MG/KG, QDX3, INTRAVENOUS
     Route: 042
     Dates: start: 20081122, end: 20081124
  2. CYCLOPHOSPHAMIDE [Concomitant]
  3. CYCLOSPORINE [Concomitant]
  4. FLUCONAZOLE [Concomitant]
  5. ACYCLOVIR [Concomitant]
  6. CIPROFLOXACIN [Concomitant]
  7. PIPERACILLIN SODIUM AND TAZOBACTAM SODIUM [Concomitant]

REACTIONS (2)
  - HYPOTENSION [None]
  - TRANSAMINASES INCREASED [None]
